FAERS Safety Report 5390399-4 (Version None)
Quarter: 2007Q3

REPORT INFORMATION
  Report Type: 
  Country: None (occurrence: None)
  Receive Date: 20070718
  Receipt Date: 20060803
  Transmission Date: 20080115
  Serious: No
  Sender: FDA-Public Use
  Company Number: US-KINGPHARMUSA00001-K200601012

PATIENT

DRUGS (3)
  1. LEVOXYL [Suspect]
     Indication: HYPOTHYROIDISM
     Dosage: 88 MCG, QD
     Route: 048
     Dates: start: 20030101
  2. NEXIUM [Concomitant]
     Indication: GASTROOESOPHAGEAL REFLUX DISEASE
  3. WELLBUTRIN - SLOW RELEASE [Concomitant]
     Indication: DEPRESSION
     Dosage: 150 MG, UNK

REACTIONS (1)
  - ORAL DISCOMFORT [None]
